FAERS Safety Report 7085430-4 (Version None)
Quarter: 2010Q4

REPORT INFORMATION
  Report Type: 
  Country: None (occurrence: None)
  Receive Date: 20101105
  Receipt Date: 20101102
  Transmission Date: 20110411
  Serious: Yes (Death, Other)
  Sender: FDA-Public Use
  Company Number: JP-PFIZER INC-2010107300

PATIENT
  Age: 79 Year
  Sex: Male
  Weight: 44.1 kg

DRUGS (11)
  1. SUTENT [Suspect]
     Dosage: UNK
     Route: 048
     Dates: end: 20100613
  2. MICARDIS [Concomitant]
     Indication: HYPERTENSION
     Dosage: 40 MG, 1X/DAY
     Route: 048
  3. 8-HOUR BAYER [Concomitant]
     Indication: MYOCARDIAL INFARCTION
     Dosage: 100 MG, 1X/DAY
     Route: 048
  4. OMEPRAL [Concomitant]
     Indication: GASTRITIS
     Dosage: 20 MG, 1X/DAY
     Route: 048
  5. SELBEX [Concomitant]
     Indication: GASTRITIS
     Dosage: 0.5 G, 3X/DAY
     Route: 048
  6. PRORENAL [Concomitant]
     Indication: VASCULITIS
     Dosage: 5 MG, 3X/DAY
     Route: 048
  7. PLETAL [Concomitant]
     Indication: MYOCARDIAL INFARCTION
     Dosage: 50 MG, 2X/DAY
     Route: 048
  8. BIOFERMIN [Concomitant]
     Indication: CONSTIPATION
     Dosage: 1 G, 3X/DAY
     Route: 048
  9. FRANDOL [Concomitant]
     Indication: PLEURAL EFFUSION
     Dosage: 40 MG, 1X/DAY
     Route: 062
  10. NAIXAN [Concomitant]
     Indication: TUMOUR ASSOCIATED FEVER
     Dosage: 100 MG, 3X/DAY
     Route: 048
     Dates: start: 20100812
  11. MUCOSOLVAN [Concomitant]
     Indication: PLEURAL EFFUSION
     Dosage: 15 MG, 3X/DAY
     Route: 048
     Dates: start: 20100815

REACTIONS (4)
  - BLOOD PRESSURE INCREASED [None]
  - GASTROINTESTINAL ULCER HAEMORRHAGE [None]
  - MYOCARDIAL INFARCTION [None]
  - PLATELET COUNT DECREASED [None]
